FAERS Safety Report 8365883-1 (Version None)
Quarter: 2012Q2

REPORT INFORMATION
  Report Type: 
  Country: None (occurrence: None)
  Receive Date: 20120515
  Receipt Date: 20120430
  Transmission Date: 20120825
  Serious: Yes (Other)
  Sender: FDA-Public Use
  Company Number: B0794642A

PATIENT
  Age: 48 Year
  Sex: Female

DRUGS (12)
  1. RANITIDINE HCL [Suspect]
     Dosage: 50 MG, IV
     Route: 042
  2. DOMPERIDONE (NO PREF. NAME) [Suspect]
     Dosage: 20 MG, PO
     Route: 048
  3. GLUCOSE OXIDASE [Concomitant]
  4. PACLITAXEL [Suspect]
     Indication: BREAST CANCER
     Dosage: 315;300 MG, Q2W, IV
     Route: 042
     Dates: start: 20110524, end: 20110607
  5. PACLITAXEL [Suspect]
     Indication: BREAST CANCER
     Dosage: 315;300 MG, Q2W, IV
     Route: 042
     Dates: start: 20110621, end: 20110705
  6. PEGFILGRASTIM (NO PREF. NAME) [Suspect]
     Indication: BREAST CANCER
     Dosage: 6 MG, SC
     Route: 058
  7. LACTOPEROXIDASE [Concomitant]
  8. DOCUSATE [Concomitant]
  9. GRANISETRON [Suspect]
     Dosage: 1 MG, BID, PO
     Route: 048
  10. CHLORPHENAMINE (NO PREF. NAME) [Suspect]
     Dosage: 10 MG, IV
     Route: 042
  11. LYSOZYME (BIOTENE DRY MOUTH MOUTHWASH) [Concomitant]
  12. DEXAMETHASONE [Suspect]
     Dosage: 20;4 MG, BID, IV
     Route: 042

REACTIONS (3)
  - FATIGUE [None]
  - CHEST PAIN [None]
  - DYSPNOEA [None]
